FAERS Safety Report 7053409-4 (Version None)
Quarter: 2010Q4

REPORT INFORMATION
  Report Type: 
  Country: None (occurrence: None)
  Receive Date: 20101020
  Receipt Date: 20101007
  Transmission Date: 20110411
  Serious: Yes (Other)
  Sender: FDA-Public Use
  Company Number: PHHY2009IE56683

PATIENT
  Sex: Female

DRUGS (17)
  1. CLOZARIL [Suspect]
     Indication: SCHIZOPHRENIA
     Dosage: 175 MG NOCTE AND 25 MG MANE)
     Route: 048
     Dates: start: 20090612
  2. CLOZARIL [Suspect]
     Dosage: 20 MG, OD
     Route: 048
  3. ALOPURINOL [Concomitant]
     Dosage: 200 MG, OD
  4. OMACOR [Concomitant]
     Dosage: 2 OD
     Route: 048
  5. MIRTAZAPINE [Concomitant]
     Dosage: 45 MG, QD
  6. ATORVASTATIN [Concomitant]
     Dosage: 45 MG, QD
  7. CALCICHEW D3 [Concomitant]
     Dosage: 2 OD
  8. DULOXETINE [Concomitant]
     Dosage: 120 MG, QD
  9. LAMOTRIGINE [Concomitant]
     Dosage: 100 MG, BID
     Route: 048
  10. TAMOXIFEN CITRATE [Concomitant]
     Dosage: 20 MG, QD
  11. PROPRANOLOL [Concomitant]
     Dosage: 100 MG, QD
  12. AMISULPRIDE [Concomitant]
     Dosage: 50 MG, BID
  13. ISTIN [Concomitant]
     Dosage: 5 MG, QD
     Route: 048
  14. ZOLPIDEM TARTRATE [Concomitant]
     Dosage: 20 MG
     Route: 048
  15. DIAZEPAM [Concomitant]
     Dosage: 3 MG, NOCTE
     Route: 048
  16. DIAZEPAM [Concomitant]
     Dosage: 5 MG, TID
     Route: 048
  17. ELTROXIN [Concomitant]
     Dosage: 125 MG, QD

REACTIONS (1)
  - BREAST LUMP REMOVAL [None]
